FAERS Safety Report 15580650 (Version 1)
Quarter: 2018Q4

REPORT INFORMATION
  Report Type: Spontaneous
  Country: ES (occurrence: ES)
  Receive Date: 20181102
  Receipt Date: 20181102
  Transmission Date: 20190205
  Serious: Yes (Hospitalization)
  Sender: FDA-Public Use
  Company Number: ES-MYLANLABS-2018M1081992

PATIENT
  Age: 6 Decade
  Sex: Male

DRUGS (3)
  1. VANCOMYCIN [Suspect]
     Active Substance: VANCOMYCIN
     Indication: BACTERAEMIA
     Dosage: ADMINISTERED IN FOUR EPISODES
     Route: 065
  2. TEICOPLANIN [Suspect]
     Active Substance: TEICOPLANIN
     Indication: BACTERAEMIA
     Route: 065
  3. DALBAVANCIN. [Suspect]
     Active Substance: DALBAVANCIN
     Indication: BACTERAEMIA
     Route: 065

REACTIONS (2)
  - Therapeutic product cross-reactivity [Unknown]
  - Neutropenia [Recovered/Resolved]
